FAERS Safety Report 7721651-2 (Version None)
Quarter: 2011Q3

REPORT INFORMATION
  Report Type: 
  Country: None (occurrence: None)
  Receive Date: 20110831
  Receipt Date: 20110427
  Transmission Date: 20111222
  Serious: Yes (Other)
  Sender: FDA-Public Use
  Company Number: US-GLAXOSMITHKLINE-A0925395A

PATIENT
  Sex: Female

DRUGS (1)
  1. AVANDIA [Suspect]
     Indication: DIABETES MELLITUS
     Dosage: 4MG PER DAY
     Route: 048
     Dates: start: 20040602, end: 20080101

REACTIONS (8)
  - SWELLING [None]
  - CHEST PAIN [None]
  - FATIGUE [None]
  - PALPITATIONS [None]
  - FLUID RETENTION [None]
  - CARDIAC DISORDER [None]
  - DYSPNOEA [None]
  - CARDIAC FAILURE CONGESTIVE [None]
